FAERS Safety Report 25125625 (Version 2)
Quarter: 2025Q2

REPORT INFORMATION
  Report Type: Report from Study
  Country: US (occurrence: US)
  Receive Date: 20250326
  Receipt Date: 20250602
  Transmission Date: 20250717
  Serious: Yes (Other)
  Sender: NOVARTIS
  Company Number: US-002147023-NVSC2025US023070

PATIENT
  Sex: Female

DRUGS (1)
  1. KESIMPTA [Suspect]
     Active Substance: OFATUMUMAB
     Indication: Relapsing multiple sclerosis
     Dosage: 20 MG, QW
     Route: 058
     Dates: start: 20250122

REACTIONS (9)
  - Multiple sclerosis [Unknown]
  - Gait disturbance [Unknown]
  - Speech disorder [Unknown]
  - Pain [Unknown]
  - Asthenia [Unknown]
  - Depressed mood [Unknown]
  - Malaise [Unknown]
  - Memory impairment [Unknown]
  - Therapeutic response shortened [Unknown]
